FAERS Safety Report 19887663 (Version 1)
Quarter: 2021Q3

REPORT INFORMATION
  Report Type: Spontaneous
  Country: FR (occurrence: FR)
  Receive Date: 20210927
  Receipt Date: 20210927
  Transmission Date: 20211014
  Serious: Yes (Hospitalization, Disabling, Congenital Anomaly, Other)
  Sender: FDA-Public Use
  Company Number: FR-ABBVIE-21K-056-4090977-00

PATIENT
  Sex: Female

DRUGS (1)
  1. DEPAKINE CHRONO [Suspect]
     Active Substance: VALPROATE SODIUM
     Indication: MATERNAL EXPOSURE TIMING UNSPECIFIED
     Route: 064

REACTIONS (68)
  - Dysmorphism [Unknown]
  - Communication disorder [Unknown]
  - Patient elopement [Unknown]
  - Microphthalmos [Unknown]
  - Dental caries [Unknown]
  - Kyphosis [Unknown]
  - Conversion disorder [Unknown]
  - Blindness unilateral [Unknown]
  - Pallor [Unknown]
  - Seizure [Unknown]
  - Respiratory arrest [Unknown]
  - Leukocoria [Unknown]
  - Urinary tract infection [Unknown]
  - Bronchitis [Unknown]
  - Bronchiolitis [Unknown]
  - Autism spectrum disorder [Unknown]
  - Strabismus [Unknown]
  - Encephalopathy [Unknown]
  - Anger [Unknown]
  - Stereotypy [Unknown]
  - Sleep disorder [Unknown]
  - Foetal exposure during pregnancy [Unknown]
  - Cataract [Unknown]
  - Retinoblastoma [Unknown]
  - Oral candidiasis [Unknown]
  - Nasopharyngitis [Unknown]
  - Language disorder [Unknown]
  - Intellectual disability [Unknown]
  - Eye discharge [Unknown]
  - Talipes [Unknown]
  - Hypermobility syndrome [Unknown]
  - Echolalia [Unknown]
  - Personality disorder [Unknown]
  - Hyperacusis [Unknown]
  - Epilepsy [Unknown]
  - Aggression [Unknown]
  - Vitreous disorder [Unknown]
  - Hypotonia [Unknown]
  - Ear infection [Unknown]
  - Conjunctivitis [Unknown]
  - Congenital optic nerve anomaly [Unknown]
  - Speech disorder developmental [Unknown]
  - Neurodevelopmental disorder [Unknown]
  - Infantile spasms [Unknown]
  - Behaviour disorder [Unknown]
  - Tooth disorder [Unknown]
  - Psychomotor skills impaired [Unknown]
  - Disturbance in attention [Unknown]
  - Pyrexia [Unknown]
  - Toothache [Unknown]
  - Pyramidal tract syndrome [Unknown]
  - Myoclonus [Unknown]
  - Gait disturbance [Unknown]
  - Cardiac murmur [Unknown]
  - Motor developmental delay [Unknown]
  - Underweight [Unknown]
  - Foot deformity [Unknown]
  - Spinal deformity [Unknown]
  - Learning disorder [Unknown]
  - Mental disorder [Unknown]
  - Visual impairment [Unknown]
  - Stomatitis [Unknown]
  - Anxiety [Unknown]
  - Pupillary disorder [Unknown]
  - Muscle spasms [Unknown]
  - Disturbance in social behaviour [Unknown]
  - Scoliosis [Unknown]
  - Social avoidant behaviour [Unknown]

NARRATIVE: CASE EVENT DATE: 19901207
